FAERS Safety Report 13707706 (Version 1)
Quarter: 2017Q2

REPORT INFORMATION
  Report Type: Report from Study
  Country: US (occurrence: US)
  Receive Date: 20170630
  Receipt Date: 20170630
  Transmission Date: 20170830
  Serious: Yes (Death)
  Sender: FDA-Public Use
  Company Number: US-TEVA-783131USA

PATIENT
  Age: 38 Year
  Sex: Male

DRUGS (2)
  1. ALPRAZOLAM. [Suspect]
     Active Substance: ALPRAZOLAM
     Route: 065
  2. HYDROCODONE [Suspect]
     Active Substance: HYDROCODONE
     Route: 065

REACTIONS (1)
  - Toxicity to various agents [Fatal]
